FAERS Safety Report 19028374 (Version 3)
Quarter: 2021Q2

REPORT INFORMATION
  Report Type: Other
  Country: BE (occurrence: BE)
  Receive Date: 20210318
  Receipt Date: 20210604
  Transmission Date: 20210717
  Serious: Yes (Hospitalization)
  Sender: FDA-Public Use
  Company Number: BE-ALSI-2021000077

PATIENT
  Age: 35 Year
  Sex: Male

DRUGS (1)
  1. NITROUS OXIDE. [Suspect]
     Active Substance: NITROUS OXIDE
     Indication: SUBSTANCE USE
     Route: 055

REACTIONS (5)
  - Demyelinating polyneuropathy [Unknown]
  - Anaemia megaloblastic [Unknown]
  - Myelopathy [Unknown]
  - Peripheral sensorimotor neuropathy [Unknown]
  - Substance use [Unknown]
